FAERS Safety Report 6544270-2 (Version None)
Quarter: 2010Q1

REPORT INFORMATION
  Report Type: 
  Country: None (occurrence: None)
  Receive Date: 20100115
  Receipt Date: 20100104
  Transmission Date: 20100710
  Serious: Yes (Disabling, Other)
  Sender: FDA-Public Use
  Company Number: 2009AP004079

PATIENT
  Age: 62 Year
  Sex: Male

DRUGS (1)
  1. TERBINAFINE HCL [Suspect]
     Indication: ONYCHOMYCOSIS
     Dosage: 250 MG; PO
     Route: 048
     Dates: start: 20090821, end: 20090917

REACTIONS (5)
  - ARTHRALGIA [None]
  - ERYTHEMA MULTIFORME [None]
  - MYALGIA [None]
  - PRURITUS [None]
  - SKIN LESION [None]
